FAERS Safety Report 15201616 (Version 1)
Quarter: 2018Q3

REPORT INFORMATION
  Report Type: Spontaneous
  Country: DE (occurrence: DE)
  Receive Date: 20180726
  Receipt Date: 20180726
  Transmission Date: 20181010
  Serious: Yes (Other)
  Sender: FDA-Public Use
  Company Number: DE-TEVA-2018-DE-927806

PATIENT
  Age: 22 Year
  Sex: Female

DRUGS (2)
  1. DESMOPRESSIN TEVA 0,1 MG TABLETTEN [Suspect]
     Active Substance: DESMOPRESSIN
     Indication: DIABETES INSIPIDUS
     Route: 048
     Dates: start: 2016, end: 201807
  2. DESMOPRESSIN TEVA 0,1 MG TABLETTEN [Suspect]
     Active Substance: DESMOPRESSIN
     Route: 048
     Dates: start: 201807, end: 201807

REACTIONS (3)
  - Diabetes insipidus [Unknown]
  - Condition aggravated [None]
  - Headache [Not Recovered/Not Resolved]

NARRATIVE: CASE EVENT DATE: 2018
